FAERS Safety Report 9373361 (Version 2)
Quarter: 2013Q3

REPORT INFORMATION
  Report Type: Report from Study
  Country: US (occurrence: US)
  Receive Date: 20130627
  Receipt Date: 20130705
  Transmission Date: 20140515
  Serious: Yes (Hospitalization)
  Sender: FDA-Public Use
  Company Number: US-ABBOTT-13P-163-1108726-00

PATIENT
  Sex: Female

DRUGS (7)
  1. HUMIRA [Suspect]
     Indication: PRODUCT USED FOR UNKNOWN INDICATION
     Route: 058
     Dates: start: 201211
  2. METHOTREXATE [Concomitant]
     Indication: PRODUCT USED FOR UNKNOWN INDICATION
  3. IRON [Concomitant]
     Indication: PRODUCT USED FOR UNKNOWN INDICATION
  4. WOMEN^S MULTIPLE VITAMINS [Concomitant]
     Indication: PRODUCT USED FOR UNKNOWN INDICATION
  5. XANAX [Concomitant]
     Indication: PRODUCT USED FOR UNKNOWN INDICATION
  6. VITAMIN B12 [Concomitant]
     Indication: PRODUCT USED FOR UNKNOWN INDICATION
  7. RECLIPSEN [Concomitant]
     Indication: PRODUCT USED FOR UNKNOWN INDICATION

REACTIONS (6)
  - White blood cell count decreased [Recovered/Resolved]
  - Neutrophil count decreased [Unknown]
  - Pharyngitis streptococcal [Recovered/Resolved]
  - Pyrexia [Recovered/Resolved]
  - Hepatic enzyme increased [Recovered/Resolved]
  - Electrolyte imbalance [Unknown]
